FAERS Safety Report 7980259-4 (Version None)
Quarter: 2011Q4

REPORT INFORMATION
  Report Type: 
  Country: None (occurrence: None)
  Receive Date: 20111212
  Receipt Date: 20111130
  Transmission Date: 20120403
  Serious: Yes (Other)
  Sender: FDA-Public Use
  Company Number: TPA2011A08101

PATIENT
  Sex: Female

DRUGS (1)
  1. ACTOS [Suspect]
     Dates: start: 20000101, end: 20110601

REACTIONS (1)
  - FUNGAL CYSTITIS [None]
